APPROVED DRUG PRODUCT: FLORINEF
Active Ingredient: FLUDROCORTISONE ACETATE
Strength: 0.1MG **Federal Register determination that product was not discontinued or withdrawn for safety or effectiveness reasons**
Dosage Form/Route: TABLET;ORAL
Application: N010060 | Product #001
Applicant: CASPER PHARMA LLC
Approved: Approved Prior to Jan 1, 1982 | RLD: Yes | RS: No | Type: DISCN